FAERS Safety Report 11157723 (Version 11)
Quarter: 2018Q1

REPORT INFORMATION
  Report Type: Report from Study
  Country: US (occurrence: US)
  Receive Date: 20150603
  Receipt Date: 20180103
  Transmission Date: 20180508
  Serious: Yes (Hospitalization, Other)
  Sender: FDA-Public Use
  Company Number: PHHO2015US008648

PATIENT
  Age: 6 Year
  Sex: Male

DRUGS (7)
  1. FLUCONAZOLE. [Concomitant]
     Active Substance: FLUCONAZOLE
     Dosage: 50 MG, QD
     Route: 048
     Dates: start: 20150610
  2. CYTOXAN [Suspect]
     Active Substance: CYCLOPHOSPHAMIDE
     Indication: ACUTE LYMPHOCYTIC LEUKAEMIA
     Dosage: 500 MG/M2
     Route: 065
     Dates: start: 20150504, end: 20150505
  3. BACTRIM [Concomitant]
     Active Substance: SULFAMETHOXAZOLE\TRIMETHOPRIM
     Indication: PROPHYLAXIS
     Dosage: 40 MG, BID (THREE TIMES/WEEK)
     Route: 048
     Dates: start: 20150430, end: 20150520
  4. FLUDARABINE [Suspect]
     Active Substance: FLUDARABINE PHOSPHATE
     Indication: ACUTE LYMPHOCYTIC LEUKAEMIA
     Dosage: 30 MG/M2
     Route: 065
     Dates: start: 20150504, end: 20150507
  5. FLUCONAZOLE. [Concomitant]
     Active Substance: FLUCONAZOLE
     Indication: PROPHYLAXIS
     Dosage: 50 MG, QD
     Route: 048
     Dates: start: 20150430, end: 20150513
  6. KYMRIAH [Suspect]
     Active Substance: TISAGENLECLEUCEL
     Indication: ACUTE LYMPHOCYTIC LEUKAEMIA
     Dosage: TRANSDUCED TCELL DOSE: 4 X 10^6 CELLS/KG
     Route: 042
     Dates: start: 20150512, end: 20150512
  7. BACTRIM [Concomitant]
     Active Substance: SULFAMETHOXAZOLE\TRIMETHOPRIM
     Dosage: 40 MG, BID (THREE TIMES/WEEK)
     Route: 048
     Dates: start: 20150609

REACTIONS (5)
  - Neutropenic colitis [Recovered/Resolved]
  - Left ventricular dysfunction [Recovered/Resolved]
  - Febrile neutropenia [Recovered/Resolved]
  - Cytokine release syndrome [Recovered/Resolved]
  - Respiratory distress [Recovered/Resolved]

NARRATIVE: CASE EVENT DATE: 20150512
